FAERS Safety Report 18157988 (Version 1)
Quarter: 2020Q3

REPORT INFORMATION
  Report Type: Spontaneous
  Country: US (occurrence: US)
  Receive Date: 20200817
  Receipt Date: 20200817
  Transmission Date: 20201103
  Serious: No
  Sender: FDA-Public Use
  Company Number: US-MEDEXUS PHARMA, INC.-2019MED00216

PATIENT
  Age: 45 Year
  Sex: Female
  Weight: 72.56 kg

DRUGS (8)
  1. MONTELUKAST [Concomitant]
     Active Substance: MONTELUKAST SODIUM
     Indication: HYPERSENSITIVITY
  2. CETIRIZINE [Concomitant]
     Active Substance: CETIRIZINE HYDROCHLORIDE
  3. VITAMIN D [Concomitant]
     Active Substance: VITAMIN D NOS
  4. TOPIRAMATE. [Concomitant]
     Active Substance: TOPIRAMATE
     Indication: MIGRAINE
  5. ESOMEPRAZOLE. [Concomitant]
     Active Substance: ESOMEPRAZOLE MAGNESIUM
  6. PLAQUENIL [Concomitant]
     Active Substance: HYDROXYCHLOROQUINE SULFATE
  7. RASUVO [Suspect]
     Active Substance: METHOTREXATE SODIUM
     Dosage: 10 MG, 1X/WEEK ON WEDNESDAYS INJECTED INTO RIGHT THIGH
     Route: 058
     Dates: start: 201908
  8. SUMATRIPTAN. [Concomitant]
     Active Substance: SUMATRIPTAN

REACTIONS (3)
  - Product use in unapproved indication [Not Recovered/Not Resolved]
  - Injection site haemorrhage [Recovered/Resolved]
  - Device failure [Recovered/Resolved]

NARRATIVE: CASE EVENT DATE: 20190911
